FAERS Safety Report 4610876-0 (Version None)
Quarter: 2005Q2

REPORT INFORMATION
  Report Type: 
  Country: None (occurrence: None)
  Receive Date: 20050228
  Receipt Date: 20041011
  Transmission Date: 20051028
  Serious: Yes (Hospitalization)
  Sender: FDA-Public Use
  Company Number: USA040771957

PATIENT
  Age: 75 Year
  Sex: Female

DRUGS (1)
  1. OLANZAPINE [Suspect]
     Dates: start: 20040520

REACTIONS (1)
  - DIABETIC COMA [None]
